FAERS Safety Report 18410123 (Version 1)
Quarter: 2020Q4

REPORT INFORMATION
  Report Type: Spontaneous
  Country: RU (occurrence: RU)
  Receive Date: 20201021
  Receipt Date: 20201021
  Transmission Date: 20210114
  Serious: Yes (Other)
  Sender: FDA-Public Use
  Company Number: NVSC2020RU265183

PATIENT
  Age: 41 Year
  Sex: Female

DRUGS (6)
  1. RIBOCICLIB. [Suspect]
     Active Substance: RIBOCICLIB
     Indication: BREAST CANCER
     Dosage: 400 MG
     Route: 065
  2. PALBOCICLIB [Suspect]
     Active Substance: PALBOCICLIB
     Indication: BREAST CANCER
     Dosage: UNK (5 DAYS A WEEK FOR 3 WEEKS, THEN A 7-DAY BREAK)
     Route: 048
     Dates: start: 201806
  3. RIBOCICLIB. [Suspect]
     Active Substance: RIBOCICLIB
     Dosage: 125 MG, QD (TO THE 21ST DAY, THEN A 7-DAY BRE)
     Route: 065
  4. DEXAMETHASONE. [Concomitant]
     Active Substance: DEXAMETHASONE
     Indication: RADIOTHERAPY
     Dosage: 4 MG, BID
     Route: 065
     Dates: start: 20181025, end: 20181113
  5. FULVESTRANT. [Suspect]
     Active Substance: FULVESTRANT
     Indication: BREAST CANCER
     Dosage: 500 MG (TWICE MONTHLY WITHIN THE FIRST MONTH, THEN ONCE MONTHLY)
     Route: 065
     Dates: start: 201812
  6. PALBOCICLIB [Suspect]
     Active Substance: PALBOCICLIB
     Dosage: 125 MG (FROM THE 1ST TO 21TH DAY,THEN 7 DAYS BREAK)
     Route: 048
     Dates: start: 201812, end: 202003

REACTIONS (9)
  - Lymphadenopathy [Unknown]
  - Pulmonary mass [Unknown]
  - Sleep disorder [Unknown]
  - Brain oedema [Unknown]
  - Neutropenia [Not Recovered/Not Resolved]
  - Nausea [Unknown]
  - Headache [Unknown]
  - Leukopenia [Not Recovered/Not Resolved]
  - Asthenia [Unknown]

NARRATIVE: CASE EVENT DATE: 201810
